FAERS Safety Report 9800127 (Version 2)
Quarter: 2014Q1

REPORT INFORMATION
  Report Type: Spontaneous
  Country: US (occurrence: US)
  Receive Date: 20140106
  Receipt Date: 20140106
  Transmission Date: 20141002
  Serious: No
  Sender: FDA-Public Use
  Company Number: US-GILEAD-2010-0032519

PATIENT
  Age: 58 Year
  Sex: Female
  Weight: 82.55 kg

DRUGS (24)
  1. LETAIRIS [Suspect]
     Indication: PULMONARY ARTERIAL HYPERTENSION
     Route: 048
     Dates: start: 20090129
  2. REVATIO [Concomitant]
  3. DIOVAN [Concomitant]
  4. LISINOPRIL [Concomitant]
  5. METOPROLOL [Concomitant]
  6. LASIX [Concomitant]
  7. LIPITOR [Concomitant]
  8. POTASSIUM [Concomitant]
  9. SIMVASTATIN [Concomitant]
  10. OXYGEN [Concomitant]
  11. ALBUTEROL [Concomitant]
  12. IPRATROPIUM BROMIDE [Concomitant]
  13. ASMANEX TWISTHALER [Concomitant]
  14. SYMBICORT [Concomitant]
  15. HUMALOG [Concomitant]
  16. LANTUS [Concomitant]
  17. METOCLOPRAMIDE [Concomitant]
  18. MOTILIUM [Concomitant]
  19. GABAPENTIN [Concomitant]
  20. LYRICA [Concomitant]
  21. PRISTIQ [Concomitant]
  22. ALLEGRA [Concomitant]
  23. KEFLEX [Concomitant]
  24. MULTIVITAMINS [Concomitant]

REACTIONS (1)
  - Blood glucose increased [Unknown]
